FAERS Safety Report 24791542 (Version 2)
Quarter: 2025Q1

REPORT INFORMATION
  Report Type: Spontaneous
  Country: US (occurrence: US)
  Receive Date: 20241231
  Receipt Date: 20250127
  Transmission Date: 20250408
  Serious: No
  Sender: ABBVIE
  Company Number: US-ABBVIE-6066745

PATIENT
  Age: 57 Year
  Sex: Female

DRUGS (1)
  1. KYBELLA [Suspect]
     Active Substance: DEOXYCHOLIC ACID
     Indication: Lipoinjection
     Route: 058
     Dates: start: 202407, end: 202407

REACTIONS (4)
  - Pain [Unknown]
  - Contusion [Recovered/Resolved]
  - Swelling [Unknown]
  - Pain in jaw [Unknown]

NARRATIVE: CASE EVENT DATE: 20240101
